FAERS Safety Report 6438658-8 (Version None)
Quarter: 2009Q4

REPORT INFORMATION
  Report Type: 
  Country: None (occurrence: None)
  Receive Date: 20091110
  Receipt Date: 20091026
  Transmission Date: 20100525
  Serious: Yes (Death, Hospitalization)
  Sender: FDA-Public Use
  Company Number: 2009AC000327

PATIENT
  Age: 93 Year
  Sex: Female

DRUGS (8)
  1. DIGOXIN [Suspect]
     Indication: HYPERTENSION
     Dosage: PO
     Route: 048
     Dates: start: 20040830
  2. VASOTEC [Concomitant]
  3. NORVASC [Concomitant]
  4. CEPHALEXIN [Concomitant]
  5. SULFAMETHOXAZOLE [Concomitant]
  6. HYDROCODONE [Concomitant]
  7. MECLIZINE [Concomitant]
  8. LISINOPRIL [Concomitant]

REACTIONS (20)
  - AGITATION [None]
  - APNOEIC ATTACK [None]
  - ATELECTASIS [None]
  - BRADYCARDIA [None]
  - CHEST DISCOMFORT [None]
  - CONFUSIONAL STATE [None]
  - COUGH [None]
  - DEHYDRATION [None]
  - DISORIENTATION [None]
  - DYSPNOEA [None]
  - EMOTIONAL DISTRESS [None]
  - HYPOTENSION [None]
  - HYPOVENTILATION [None]
  - PAIN [None]
  - PLEURAL FIBROSIS [None]
  - PNEUMONIA [None]
  - RESPIRATORY FAILURE [None]
  - THERAPEUTIC AGENT TOXICITY [None]
  - UNRESPONSIVE TO STIMULI [None]
  - WHEEZING [None]
